FAERS Safety Report 16673736 (Version 1)
Quarter: 2019Q3

REPORT INFORMATION
  Report Type: Spontaneous
  Country: US (occurrence: US)
  Receive Date: 20190620
  Receipt Date: 20190620
  Transmission Date: 20191004
  Serious: Yes (Life-Threatening, Hospitalization)
  Sender: FDA-Public Use
  Company Number: None

PATIENT
  Age: 75 Year
  Sex: Male

DRUGS (1)
  1. INDOMETHACIN. [Suspect]
     Active Substance: INDOMETHACIN
     Route: 048
     Dates: start: 20181226, end: 20190512

REACTIONS (8)
  - Iron deficiency anaemia [None]
  - Hypoxia [None]
  - Leukocytosis [None]
  - Breathing-related sleep disorder [None]
  - Shock [None]
  - Ileal ulcer [None]
  - Gastric haemorrhage [None]
  - Pulmonary hypertension [None]

NARRATIVE: CASE EVENT DATE: 20190512
